FAERS Safety Report 5816861-5 (Version None)
Quarter: 2008Q3

REPORT INFORMATION
  Report Type: 
  Country: None (occurrence: None)
  Receive Date: 20080721
  Receipt Date: 20080711
  Transmission Date: 20090109
  Serious: Yes (Life-Threatening)
  Sender: FDA-Public Use
  Company Number: JP-MERCK-0807USA00483

PATIENT
  Age: 43 Year
  Sex: Male
  Weight: 57 kg

DRUGS (1)
  1. PROPECIA [Suspect]
     Indication: ANDROGENETIC ALOPECIA
     Route: 048
     Dates: start: 20080301, end: 20080613

REACTIONS (2)
  - BONE NEOPLASM [None]
  - THROMBOTIC MICROANGIOPATHY [None]
